FAERS Safety Report 23739576 (Version 1)
Quarter: 2024Q2

REPORT INFORMATION
  Report Type: Spontaneous
  Country: US (occurrence: None)
  Receive Date: 20240413
  Receipt Date: 20240413
  Transmission Date: 20240716
  Serious: Yes (Other)
  Sender: FDA-Public Use
  Company Number: US-ROCHE-3543550

PATIENT
  Sex: Female

DRUGS (2)
  1. ACTEMRA [Suspect]
     Active Substance: TOCILIZUMAB
     Indication: Polyarthritis
     Dosage: 162 MG/0.9 ML
     Route: 058
     Dates: start: 202310
  2. ACTEMRA [Suspect]
     Active Substance: TOCILIZUMAB

REACTIONS (1)
  - B-cell lymphoma [Unknown]
